FAERS Safety Report 5731638-7 (Version None)
Quarter: 2008Q2

REPORT INFORMATION
  Report Type: 
  Country: None (occurrence: None)
  Receive Date: 20080508
  Receipt Date: 20080425
  Transmission Date: 20081010
  Serious: Yes (Other)
  Sender: FDA-Public Use
  Company Number: PHHY2008CA03259

PATIENT
  Age: 36 Year
  Sex: Female

DRUGS (4)
  1. GLEEVEC [Suspect]
     Indication: HEPATIC NEOPLASM MALIGNANT
     Dosage: UNK, UNK
     Route: 048
     Dates: end: 20050901
  2. GLEEVEC [Suspect]
     Dosage: UNK, NO TREATMENT
  3. GLEEVEC [Suspect]
     Dates: start: 20080301
  4. METHADONE HCL [Concomitant]
     Dosage: 18 MG, BID
     Route: 048

REACTIONS (3)
  - CAESAREAN SECTION [None]
  - DRUG EXPOSURE DURING PREGNANCY [None]
  - PREMATURE LABOUR [None]
